FAERS Safety Report 4319242-9 (Version None)
Quarter: 2004Q1

REPORT INFORMATION
  Report Type: 
  Country: None (occurrence: None)
  Receive Date: 20040316
  Receipt Date: 20040308
  Transmission Date: 20041129
  Serious: Yes (Other)
  Sender: FDA-Public Use
  Company Number: 2004202550DE

PATIENT
  Age: 33 Year
  Sex: Female

DRUGS (1)
  1. FRAGMIN [Suspect]
     Indication: ANTICOAGULANT THERAPY
     Dosage: 5000 IU, BID, SUBCUTANEOUS
     Route: 058

REACTIONS (5)
  - DEEP VEIN THROMBOSIS [None]
  - DRUG INEFFECTIVE [None]
  - ENDOMETRIAL CANCER STAGE I [None]
  - METRORRHAGIA [None]
  - POST PROCEDURAL COMPLICATION [None]
